FAERS Safety Report 4983130-5 (Version None)
Quarter: 2006Q2

REPORT INFORMATION
  Report Type: 
  Country: None (occurrence: None)
  Receive Date: 20060419
  Receipt Date: 20060406
  Transmission Date: 20061013
  Serious: Yes (Other)
  Sender: FDA-Public Use
  Company Number: 2006050911

PATIENT

DRUGS (1)
  1. GABAPENTIN [Suspect]
     Indication: ILL-DEFINED DISORDER
     Dosage: 300 MG (1 IN 1 D), ORAL
     Route: 048

REACTIONS (2)
  - CONVULSION [None]
  - HAEMODIALYSIS [None]
